FAERS Safety Report 5207575-3 (Version None)
Quarter: 2006Q4

REPORT INFORMATION
  Report Type: 
  Country: None (occurrence: None)
  Receive Date: 20061030
  Receipt Date: 20060803
  Transmission Date: 20070319
  Serious: No
  Sender: FDA-Public Use
  Company Number: 255930

PATIENT
  Age: 58 Year
  Sex: Female
  Weight: 50.8 kg

DRUGS (2)
  1. LEVEMIR [Suspect]
     Indication: DIABETES MELLITUS INSULIN-DEPENDENT
     Dosage: 20 IU, QD, SUBCUTANEOUS
     Route: 058
     Dates: start: 20060801
  2. NOVOLOG [Suspect]
     Indication: DIABETES MELLITUS INSULIN-DEPENDENT
     Dosage: 8 IU, QD + SLIDING SCALE, SUBCUTANEOUS
     Route: 058
     Dates: start: 20060801

REACTIONS (1)
  - BLOOD GLUCOSE INCREASED [None]
